FAERS Safety Report 18467768 (Version 1)
Quarter: 2020Q4

REPORT INFORMATION
  Report Type: Spontaneous
  Country: US (occurrence: US)
  Receive Date: 20201105
  Receipt Date: 20201105
  Transmission Date: 20210114
  Serious: Yes (Other)
  Sender: FDA-Public Use
  Company Number: US-ABBVIE-20K-163-3630597-00

PATIENT
  Age: 41 Year
  Sex: Female

DRUGS (8)
  1. DEXTROAMPHETAMINE SACCHARATE [Concomitant]
     Active Substance: DEXTROAMPHETAMINE SACCHARATE
     Indication: PRODUCT USED FOR UNKNOWN INDICATION
  2. VALPROATE SODIUM. [Suspect]
     Active Substance: VALPROATE SODIUM
     Indication: MIGRAINE
     Route: 065
  3. RIZATRIPTAN. [Suspect]
     Active Substance: RIZATRIPTAN
     Indication: MIGRAINE
     Route: 065
  4. NORTRIPTYLINE [Suspect]
     Active Substance: NORTRIPTYLINE
     Indication: MIGRAINE
     Route: 065
  5. TOPIRAMATE. [Concomitant]
     Active Substance: TOPIRAMATE
     Indication: PRODUCT USED FOR UNKNOWN INDICATION
  6. BUTALBITAL, ACETAMINOPHEN, AND CAFFEINE [Concomitant]
     Active Substance: ACETAMINOPHEN\BUTALBITAL\CAFFEINE
     Indication: PRODUCT USED FOR UNKNOWN INDICATION
  7. TOFACITINIB [Concomitant]
     Active Substance: TOFACITINIB
     Indication: PRODUCT USED FOR UNKNOWN INDICATION
  8. AIMOVIG [Suspect]
     Active Substance: ERENUMAB-AOOE
     Indication: MIGRAINE
     Route: 065

REACTIONS (2)
  - Colitis ischaemic [Unknown]
  - Off label use [Unknown]
